FAERS Safety Report 8002066-9 (Version None)
Quarter: 2011Q4

REPORT INFORMATION
  Report Type: 
  Country: None (occurrence: None)
  Receive Date: 20111222
  Receipt Date: 20111214
  Transmission Date: 20120403
  Serious: Yes (Other)
  Sender: FDA-Public Use
  Company Number: PHHY2011CN108994

PATIENT
  Age: 58 Year
  Sex: Male

DRUGS (2)
  1. EFFIENT [Suspect]
     Dosage: 10 MG, QD
  2. ACETYLSALICYLIC ACID SRT [Suspect]
     Dosage: 100 MG, QD

REACTIONS (10)
  - EPIGASTRIC DISCOMFORT [None]
  - MELAENA [None]
  - GASTROINTESTINAL ULCER [None]
  - OESOPHAGEAL ULCER HAEMORRHAGE [None]
  - NAUSEA [None]
  - GASTRIC MUCOSAL LESION [None]
  - NEOPLASM MALIGNANT [None]
  - OEDEMA MUCOSAL [None]
  - HAEMATEMESIS [None]
  - CHEST PAIN [None]
